FAERS Safety Report 19476101 (Version 3)
Quarter: 2021Q3

REPORT INFORMATION
  Report Type: Report from Study
  Country: US (occurrence: US)
  Receive Date: 20210630
  Receipt Date: 20210818
  Transmission Date: 20211014
  Serious: No
  Sender: FDA-Public Use
  Company Number: NVSC2021US139644

PATIENT
  Sex: Female

DRUGS (3)
  1. PROMACTA [Suspect]
     Active Substance: ELTROMBOPAG OLAMINE
     Dosage: 25 MG, QD
     Route: 048
  2. PROMACTA [Suspect]
     Active Substance: ELTROMBOPAG OLAMINE
     Indication: IMMUNE THROMBOCYTOPENIA
     Route: 065
  3. PROMACTA [Suspect]
     Active Substance: ELTROMBOPAG OLAMINE
     Dosage: 25 MG, QD (1 TABLET EVERY OTHER DAY)
     Route: 048

REACTIONS (7)
  - Back pain [Not Recovered/Not Resolved]
  - Cough [Recovering/Resolving]
  - Arthralgia [Recovering/Resolving]
  - Tooth infection [Unknown]
  - Myalgia [Unknown]
  - Pain in extremity [Recovering/Resolving]
  - Platelet count increased [Unknown]
